FAERS Safety Report 8405189-5 (Version None)
Quarter: 2012Q2

REPORT INFORMATION
  Report Type: 
  Country: None (occurrence: None)
  Receive Date: 20120603
  Receipt Date: 20120524
  Transmission Date: 20120825
  Serious: Yes (Other)
  Sender: FDA-Public Use
  Company Number: JP-VERTEX PHARMACEUTICALS INC.-AE-2012-005201

PATIENT
  Age: 64 Year
  Sex: Male

DRUGS (13)
  1. NEORAL [Concomitant]
     Route: 048
  2. PEGINTERFERON ALFA-2B [Concomitant]
     Route: 051
     Dates: start: 20120114
  3. PURSENNID [Concomitant]
     Route: 048
  4. MAGLAX [Concomitant]
     Route: 048
  5. URSO 250 [Concomitant]
     Route: 048
  6. CELLCEPT [Concomitant]
     Route: 048
  7. NEORAL [Concomitant]
     Route: 048
  8. TELAVIC (TELAPREVIR) [Suspect]
     Indication: HEPATITIS C
     Route: 048
     Dates: start: 20120223, end: 20120225
  9. NORVASC [Concomitant]
     Route: 048
  10. MEDROL [Concomitant]
     Route: 048
  11. RIBAVIRIN [Concomitant]
     Route: 048
     Dates: start: 20100114
  12. OMEPRAZOLE [Concomitant]
     Route: 048
  13. TELAVIC (TELAPREVIR) [Suspect]
     Route: 048
     Dates: start: 20120226

REACTIONS (2)
  - RENAL DISORDER [None]
  - CONSTIPATION [None]
